FAERS Safety Report 7742217-4 (Version None)
Quarter: 2011Q3

REPORT INFORMATION
  Report Type: 
  Country: None (occurrence: None)
  Receive Date: 20110826
  Receipt Date: 20110815
  Transmission Date: 20111222
  Serious: Yes (Other)
  Sender: FDA-Public Use
  Company Number: 2010SP062584

PATIENT
  Age: 35 Year
  Sex: Female
  Weight: 106.5953 kg

DRUGS (1)
  1. NUVARING [Suspect]
     Indication: CONTRACEPTION
     Dates: start: 20070301, end: 20080101

REACTIONS (24)
  - PORTAL VEIN THROMBOSIS [None]
  - SCAR [None]
  - HEPATIC CYST [None]
  - DIZZINESS [None]
  - GASTRIC DISORDER [None]
  - GASTROOESOPHAGEAL REFLUX DISEASE [None]
  - SLEEP DISORDER [None]
  - HAEMORRHAGE [None]
  - FLANK PAIN [None]
  - MEDICAL DEVICE COMPLICATION [None]
  - IRON DEFICIENCY ANAEMIA [None]
  - VAGINAL DISCHARGE [None]
  - MENORRHAGIA [None]
  - ABDOMINAL PAIN UPPER [None]
  - HAEMORRHOIDS [None]
  - HEADACHE [None]
  - VAGINAL HAEMORRHAGE [None]
  - BURNS THIRD DEGREE [None]
  - ARTHRALGIA [None]
  - LIVER FUNCTION TEST ABNORMAL [None]
  - NEPHROLITHIASIS [None]
  - BLOOD CHOLESTEROL INCREASED [None]
  - TRICHOMONIASIS [None]
  - RENAL CYST [None]
